FAERS Safety Report 13539512 (Version 3)
Quarter: 2018Q1

REPORT INFORMATION
  Report Type: Report from Study
  Country: US (occurrence: US)
  Receive Date: 20170512
  Receipt Date: 20180315
  Transmission Date: 20180508
  Serious: Yes (Hospitalization)
  Sender: FDA-Public Use
  Company Number: US-ROCHE-1931254

PATIENT
  Age: 69 Year
  Sex: Male
  Weight: 104.2 kg

DRUGS (9)
  1. FENTANYL. [Concomitant]
     Active Substance: FENTANYL
     Route: 042
     Dates: start: 20170503, end: 20170503
  2. LISINOPRIL. [Concomitant]
     Active Substance: LISINOPRIL
     Indication: HYPERTENSION
     Route: 048
     Dates: start: 20160120
  3. PROPOFOL. [Concomitant]
     Active Substance: PROPOFOL
     Route: 042
     Dates: start: 20170503, end: 20170503
  4. CALCIUM CARBONATE. [Concomitant]
     Active Substance: CALCIUM CARBONATE
     Indication: ABDOMINAL PAIN UPPER
     Route: 048
     Dates: start: 20170502
  5. ATEZOLIZUMAB. [Suspect]
     Active Substance: ATEZOLIZUMAB
     Indication: TRANSITIONAL CELL CARCINOMA
     Dosage: MOST RECENT DOSE (1200 MG) PRIOR TO GI BLEED ONSET: 11/APR/2017 AT 14:35.?INTERRUPTED ON AN UNSPECIF
     Route: 042
     Dates: start: 20160623
  6. DOCUSATE [Concomitant]
     Active Substance: DOCUSATE
     Indication: CONSTIPATION PROPHYLAXIS
     Route: 048
     Dates: start: 20160510
  7. PHENYLEPHRINE [Concomitant]
     Active Substance: PHENYLEPHRINE\PHENYLEPHRINE HYDROCHLORIDE
     Route: 042
     Dates: start: 20170503, end: 20170503
  8. NORMAL SALINE [Concomitant]
     Active Substance: SODIUM CHLORIDE
     Indication: DEHYDRATION
     Route: 042
     Dates: start: 20170502, end: 20170502
  9. VASOPRESSIN. [Concomitant]
     Active Substance: VASOPRESSIN
     Dosage: DOSE: 2 UNIT
     Route: 042
     Dates: start: 20170503, end: 20170503

REACTIONS (1)
  - Gastrointestinal haemorrhage [Recovered/Resolved]

NARRATIVE: CASE EVENT DATE: 20170502
